FAERS Safety Report 6035186-9 (Version None)
Quarter: 2009Q1

REPORT INFORMATION
  Report Type: 
  Country: None (occurrence: None)
  Receive Date: 20090109
  Receipt Date: 20081231
  Transmission Date: 20090719
  Serious: Yes (Death)
  Sender: FDA-Public Use
  Company Number: GXKR2008IT12344

PATIENT
  Age: 14 Year
  Sex: Male

DRUGS (8)
  1. METHOTREXATE [Suspect]
     Indication: ACUTE GRAFT VERSUS HOST DISEASE IN INTESTINE
     Dosage: 15 MG/M2, DAY +1 ; 10 MG/M2, DAYS +3, +6 AND +11
  2. METHOTREXATE [Suspect]
     Indication: ACUTE GRAFT VERSUS HOST DISEASE IN LIVER
     Dosage: 15 MG/M2, DAY +1 ; 10 MG/M2, DAYS +3, +6 AND +11
  3. METHOTREXATE [Suspect]
     Indication: ACUTE GRAFT VERSUS HOST DISEASE IN SKIN
     Dosage: 15 MG/M2, DAY +1 ; 10 MG/M2, DAYS +3, +6 AND +11
  4. METHOTREXATE [Suspect]
     Indication: PROPHYLAXIS AGAINST GRAFT VERSUS HOST DISEASE
     Dosage: 15 MG/M2, DAY +1 ; 10 MG/M2, DAYS +3, +6 AND +11
  5. METHYLPREDNISOLONE 4MG TAB [Suspect]
     Indication: GRAFT VERSUS HOST DISEASE
  6. PREDNISONE [Suspect]
     Indication: GRAFT VERSUS HOST DISEASE
     Dosage: ORAL
     Route: 048
  7. AZATHIOPRINE [Suspect]
     Indication: CHRONIC GRAFT VERSUS HOST DISEASE
  8. THALIDOMIDE [Suspect]
     Indication: CHRONIC GRAFT VERSUS HOST DISEASE

REACTIONS (5)
  - ACUTE GRAFT VERSUS HOST DISEASE IN INTESTINE [None]
  - ACUTE GRAFT VERSUS HOST DISEASE IN SKIN [None]
  - METASTASES TO LYMPH NODES [None]
  - METASTASIS [None]
  - SQUAMOUS CELL CARCINOMA [None]
